FAERS Safety Report 20542549 (Version 1)
Quarter: 2022Q1

REPORT INFORMATION
  Report Type: Spontaneous
  Country: CA (occurrence: CA)
  Receive Date: 20220302
  Receipt Date: 20220302
  Transmission Date: 20220423
  Serious: Yes (Hospitalization, Other)
  Sender: FDA-Public Use
  Company Number: CA-CIPHER-2022-CA-000080

PATIENT
  Age: 54 Year
  Sex: Female

DRUGS (28)
  1. TRAMADOL HYDROCHLORIDE [Suspect]
     Active Substance: TRAMADOL HYDROCHLORIDE
     Indication: Product used for unknown indication
     Dosage: DOSE UNKNOWN
     Route: 065
  2. ERGOCALCIFEROL [Suspect]
     Active Substance: ERGOCALCIFEROL
  3. ESOMEPRAZOLE [Suspect]
     Active Substance: ESOMEPRAZOLE
  4. FORMOTEROL FUMARATE [Suspect]
     Active Substance: FORMOTEROL FUMARATE
  5. HYALURONATE SODIUM [Suspect]
     Active Substance: HYALURONATE SODIUM
  6. LEVOTHYROXINE SODIUM [Suspect]
     Active Substance: LEVOTHYROXINE SODIUM
  7. METOPROLOL [Suspect]
     Active Substance: METOPROLOL
  8. MOMETASONE [Suspect]
     Active Substance: MOMETASONE
  9. MONTELUKAST SODIUM [Suspect]
     Active Substance: MONTELUKAST SODIUM
  10. NASONEX [Suspect]
     Active Substance: MOMETASONE FUROATE
  11. PERINDOPRIL [Suspect]
     Active Substance: PERINDOPRIL
  12. TRAMADOL [Suspect]
     Active Substance: TRAMADOL
  13. PREDNISONE [Suspect]
     Active Substance: PREDNISONE
  14. ALBUTEROL [Suspect]
     Active Substance: ALBUTEROL
  15. ALBUTEROL SULFATE [Concomitant]
     Active Substance: ALBUTEROL SULFATE
  16. SODIUM CHLORIDE [Suspect]
     Active Substance: SODIUM CHLORIDE
  17. SODIUM BICARBONATE\SODIUM CHLORIDE [Suspect]
     Active Substance: SODIUM BICARBONATE\SODIUM CHLORIDE
  18. SPIRONOLACTONE [Suspect]
     Active Substance: SPIRONOLACTONE
  19. TRAZODONE [Suspect]
     Active Substance: TRAZODONE HYDROCHLORIDE
  20. VITAMIN C [Suspect]
     Active Substance: ASCORBIC ACID
  21. VITAMIN D [Suspect]
     Active Substance: VITAMIN D NOS
  22. ACYCLOVIR [Suspect]
     Active Substance: ACYCLOVIR
  23. APIXABAN [Suspect]
     Active Substance: APIXABAN
  24. TRAMADOL [Suspect]
     Active Substance: TRAMADOL
  25. BUDESONIDE\FORMOTEROL FUMARATE DIHYDRATE [Suspect]
     Active Substance: BUDESONIDE\FORMOTEROL FUMARATE DIHYDRATE
  26. BUPROPION [Suspect]
     Active Substance: BUPROPION
  27. CLONAZEPAM [Suspect]
     Active Substance: CLONAZEPAM
  28. CYANOCOBALAMIN [Suspect]
     Active Substance: CYANOCOBALAMIN

REACTIONS (21)
  - Gastrooesophageal reflux disease [Recovered/Resolved]
  - Headache [Recovered/Resolved]
  - Hypertension [Recovered/Resolved]
  - Hypothyroidism [Recovered/Resolved]
  - Loss of personal independence in daily activities [Recovered/Resolved]
  - Polycystic ovaries [Recovered/Resolved]
  - Renal disorder [Recovered/Resolved]
  - Rhinitis allergic [Recovered/Resolved]
  - Sensitisation [Recovered/Resolved]
  - Sleep apnoea syndrome [Recovered/Resolved]
  - Asthma [Recovered/Resolved]
  - Sleep disorder due to a general medical condition [Recovered/Resolved]
  - Therapeutic product effect incomplete [Recovered/Resolved]
  - Wheezing [Recovered/Resolved]
  - Burning sensation [Recovered/Resolved]
  - Cardiac disorder [Recovered/Resolved]
  - Carpal tunnel syndrome [Recovered/Resolved]
  - Dyspnoea [Recovered/Resolved]
  - Ejection fraction abnormal [Recovered/Resolved]
  - Fibromyalgia [Recovered/Resolved]
  - Full blood count abnormal [Recovered/Resolved]
